FAERS Safety Report 12208473 (Version 1)
Quarter: 2016Q1

REPORT INFORMATION
  Report Type: Spontaneous
  Country: US (occurrence: US)
  Receive Date: 20160324
  Receipt Date: 20160324
  Transmission Date: 20160526
  Serious: Yes (Hospitalization, Other)
  Sender: FDA-Public Use
  Company Number: US-INDIVIOR LIMITED-INDV-089009-2016

PATIENT
  Sex: Male
  Weight: 2.83 kg

DRUGS (3)
  1. NICOTINE. [Suspect]
     Active Substance: NICOTINE
     Indication: NICOTINE DEPENDENCE
     Dosage: HALF OF PACK CIGARETTES, DAILY
     Route: 064
     Dates: start: 201504, end: 20151231
  2. SUBOXONE [Suspect]
     Active Substance: BUPRENORPHINE HYDROCHLORIDE\NALOXONE HYDROCHLORIDE
     Indication: DRUG DEPENDENCE
     Dosage: UNK, DAILY FOR 3 DAYS
     Route: 064
     Dates: start: 2015, end: 2015
  3. BUPRENORPHINE GENERIC TAB [Suspect]
     Active Substance: BUPRENORPHINE
     Indication: DRUG DEPENDENCE
     Dosage: 16-24MG, DAILY
     Route: 064
     Dates: start: 2015, end: 20151231

REACTIONS (4)
  - Foetal exposure during pregnancy [Recovered/Resolved]
  - Poor weight gain neonatal [Not Recovered/Not Resolved]
  - Drug withdrawal syndrome neonatal [Recovered/Resolved]
  - Infantile colic [Not Recovered/Not Resolved]

NARRATIVE: CASE EVENT DATE: 2015
